FAERS Safety Report 9724725 (Version 3)
Quarter: 2014Q1

REPORT INFORMATION
  Report Type: Spontaneous
  Country: US (occurrence: US)
  Receive Date: 20131202
  Receipt Date: 20140207
  Transmission Date: 20141002
  Serious: Yes (Hospitalization)
  Sender: FDA-Public Use
  Company Number: US-009507513-1311USA009514

PATIENT
  Sex: Female

DRUGS (3)
  1. VICTRELIS [Suspect]
     Indication: HEPATITIS C
     Dosage: 4 DF, Q7H
     Route: 048
     Dates: start: 20131029, end: 20131129
  2. REBETOL [Suspect]
     Indication: HEPATITIS C
     Dosage: 200 MG, BID
     Route: 048
     Dates: start: 20130930, end: 20131129
  3. PEGASYS [Suspect]
     Indication: HEPATITIS C
     Dosage: UNK, QW
     Route: 058
     Dates: start: 20130930, end: 20131129

REACTIONS (22)
  - Transfusion [Unknown]
  - Transfusion [Unknown]
  - Red blood cell count decreased [Unknown]
  - Red blood cell count decreased [Unknown]
  - Somnolence [Unknown]
  - Eating disorder symptom [Unknown]
  - Blood glucose fluctuation [Unknown]
  - Abdominal distension [Unknown]
  - Headache [Unknown]
  - Pyrexia [Unknown]
  - Myalgia [Unknown]
  - Back pain [Unknown]
  - Asthenia [Unknown]
  - Diarrhoea [Unknown]
  - Nausea [Unknown]
  - Arthralgia [Unknown]
  - Dizziness [Unknown]
  - Fatigue [Unknown]
  - Gastric ulcer [Unknown]
  - Oesophageal ulcer [Unknown]
  - Arthralgia [Unknown]
  - Haemorrhage [Unknown]
